FAERS Safety Report 21046031 (Version 1)
Quarter: 2022Q3

REPORT INFORMATION
  Report Type: Spontaneous
  Country: ES (occurrence: ES)
  Receive Date: 20220706
  Receipt Date: 20220706
  Transmission Date: 20221027
  Serious: Yes (Life-Threatening, Hospitalization, Disabling, Other)
  Sender: FDA-Public Use
  Company Number: None

PATIENT
  Age: 64 Year
  Sex: Male
  Weight: 70 kg

DRUGS (2)
  1. APREMILAST [Interacting]
     Active Substance: APREMILAST
     Indication: Psoriasis
     Dosage: 60 MG/DAY
     Route: 065
     Dates: start: 20190521
  2. METHOTREXATE [Interacting]
     Active Substance: METHOTREXATE
     Indication: Psoriasis
     Dosage: 15 MG/ WEEK
     Route: 065
     Dates: start: 20190807, end: 20210301

REACTIONS (1)
  - Adenocarcinoma pancreas [Not Recovered/Not Resolved]

NARRATIVE: CASE EVENT DATE: 20210215
